FAERS Safety Report 9023426 (Version 3)
Quarter: 2013Q2

REPORT INFORMATION
  Report Type: Report from Study
  Country: US (occurrence: US)
  Receive Date: 20130121
  Receipt Date: 20130514
  Transmission Date: 20140414
  Serious: Yes (Hospitalization, Other)
  Sender: FDA-Public Use
  Company Number: US-ABBOTT-12P-163-1016606-00

PATIENT
  Age: 61 Year
  Sex: Female

DRUGS (19)
  1. HUMIRA PEN [Suspect]
     Indication: RHEUMATOID ARTHRITIS
     Dates: start: 20121107
  2. UNKNOWN MEDICATIONS [Concomitant]
     Indication: PRODUCT USED FOR UNKNOWN INDICATION
  3. LEFLUNOMIDE [Concomitant]
     Indication: PRODUCT USED FOR UNKNOWN INDICATION
     Dosage: 20 MG DAILY
  4. MODAFINIL [Concomitant]
     Indication: ASTHENIA
     Dosage: 200 MG DAILY
  5. PREDNISONE [Concomitant]
     Indication: PRODUCT USED FOR UNKNOWN INDICATION
     Dosage: 5 MG IN THE MORNING
  6. DICYCLOMINE [Concomitant]
     Indication: GASTRIC DISORDER
  7. GABAPENTIN [Concomitant]
     Indication: PRODUCT USED FOR UNKNOWN INDICATION
  8. BENAZAPRIL [Concomitant]
     Indication: HYPERTENSION
     Dosage: 20 MG DAILY
  9. KLONOPIN [Concomitant]
     Indication: ANXIETY
     Dosage: 1 IN MORNING, 1 IN AFTERNOON, AND 2 AT NIGHT
  10. CELEBREX [Concomitant]
     Indication: ARTHRITIS
     Dosage: 200 MG DAILY
  11. VENLAFAXINE [Concomitant]
     Indication: DEPRESSION
  12. CEVIMELINE [Concomitant]
     Indication: DRY EYE
  13. CEVIMELINE [Concomitant]
     Indication: DRY MOUTH
  14. METOPROLOL SUCCINATE [Concomitant]
     Indication: HEART RATE INCREASED
     Dosage: 25 MG DAILY
  15. DEXILANT [Concomitant]
     Indication: GASTROOESOPHAGEAL REFLUX DISEASE
     Dosage: 60 MG DAILY
  16. LORATADINE [Concomitant]
     Indication: HYPERSENSITIVITY
     Dosage: 10 MG DAILY EVERY ONCE IN A WHILE
  17. PROCHLORPERAZINE [Concomitant]
     Indication: NAUSEA
  18. CREON [Concomitant]
     Indication: PRODUCT USED FOR UNKNOWN INDICATION
  19. ADVAIR [Concomitant]
     Indication: PRODUCT USED FOR UNKNOWN INDICATION

REACTIONS (16)
  - Medical device complication [Unknown]
  - Malaise [Not Recovered/Not Resolved]
  - Depression [Not Recovered/Not Resolved]
  - Abdominal pain upper [Not Recovered/Not Resolved]
  - Injection site pain [Not Recovered/Not Resolved]
  - Gastrooesophageal reflux disease [Unknown]
  - Incorrect dose administered [Unknown]
  - Injection site pain [Unknown]
  - Injection site haemorrhage [Unknown]
  - Needle issue [Unknown]
  - Feeling abnormal [Recovered/Resolved]
  - Hypoaesthesia [Recovered/Resolved]
  - Chest discomfort [Recovered/Resolved]
  - Drug dose omission [Unknown]
  - Chest pain [Unknown]
  - Pain in extremity [Unknown]
